FAERS Safety Report 5627212-3 (Version None)
Quarter: 2008Q1

REPORT INFORMATION
  Report Type: 
  Country: None (occurrence: None)
  Receive Date: 20080212
  Receipt Date: 20080212
  Transmission Date: 20080703
  Serious: Yes (Other)
  Sender: FDA-Public Use
  Company Number: None

PATIENT
  Age: 57 Year
  Sex: Female
  Weight: 53.0709 kg

DRUGS (2)
  1. LEVAQUIN [Suspect]
     Indication: BETA HAEMOLYTIC STREPTOCOCCAL INFECTION
     Dosage: 250 MG. ONCE DAILY PO
     Route: 048
     Dates: start: 20080113, end: 20080117
  2. LEVAQUIN [Suspect]
     Indication: URINARY TRACT INFECTION
     Dosage: 250 MG. ONCE DAILY PO
     Route: 048
     Dates: start: 20080113, end: 20080117

REACTIONS (7)
  - ANXIETY [None]
  - DRUG HYPERSENSITIVITY [None]
  - ERYTHEMA [None]
  - FLUSHING [None]
  - INSOMNIA [None]
  - RASH [None]
  - WHEEZING [None]
